FAERS Safety Report 6387435-5 (Version None)
Quarter: 2009Q3

REPORT INFORMATION
  Report Type: 
  Country: None (occurrence: None)
  Receive Date: 20090930
  Receipt Date: 20090916
  Transmission Date: 20100115
  Serious: Yes (Congenital Anomaly, Other)
  Sender: FDA-Public Use
  Company Number: 238358K09USA

PATIENT

DRUGS (4)
  1. REBIF [Suspect]
     Indication: MULTIPLE SCLEROSIS
     Dosage: TRANSPLACENTAL
     Route: 064
  2. YAZ [Suspect]
     Indication: CONTRACEPTION
     Dosage: TRANSPLACENTAL
     Route: 064
     Dates: start: 20080601, end: 20081201
  3. FLEXERIL [Suspect]
     Indication: MUSCLE SPASMS
     Dosage: TRANSPLACENTAL
     Route: 064
  4. LOVENOX [Suspect]
     Indication: PULMONARY EMBOLISM
     Dosage: TRANSPLACENTAL
     Route: 064
     Dates: start: 20081201, end: 20090701

REACTIONS (3)
  - ABORTION INDUCED [None]
  - MATERNAL DRUGS AFFECTING FOETUS [None]
  - SPINA BIFIDA [None]
